FAERS Safety Report 20831843 (Version 1)
Quarter: 2022Q2

REPORT INFORMATION
  Report Type: Report from Study
  Country: US (occurrence: US)
  Receive Date: 20220516
  Receipt Date: 20220516
  Transmission Date: 20220720
  Serious: Yes (Other)
  Sender: FDA-Public Use
  Company Number: US-ABBVIE-22K-163-4391954-00

PATIENT
  Sex: Male

DRUGS (2)
  1. IMBRUVICA [Suspect]
     Active Substance: IBRUTINIB
     Indication: B-cell prolymphocytic leukaemia
     Route: 048
     Dates: start: 20180202
  2. COVID-19 VACCINE NOS [Suspect]
     Active Substance: COVID-19 VACCINE NOS
     Indication: COVID-19 immunisation
     Route: 030

REACTIONS (5)
  - Coma [Unknown]
  - Complication associated with device [Unknown]
  - Gastric disorder [Unknown]
  - Gait inability [Recovered/Resolved]
  - Vaccination failure [Unknown]

NARRATIVE: CASE EVENT DATE: 20180101
